FAERS Safety Report 22128147 (Version 1)
Quarter: 2023Q1

REPORT INFORMATION
  Report Type: Spontaneous
  Country: US (occurrence: US)
  Receive Date: 20230323
  Receipt Date: 20230323
  Transmission Date: 20230417
  Serious: No
  Sender: FDA-Public Use
  Company Number: US-ALLERGAN-2234977US

PATIENT

DRUGS (1)
  1. VRAYLAR [Suspect]
     Active Substance: CARIPRAZINE
     Indication: Product used for unknown indication
     Dosage: UNK

REACTIONS (5)
  - Tardive dyskinesia [Unknown]
  - Movement disorder [Not Recovered/Not Resolved]
  - Discomfort [Unknown]
  - Therapeutic response unexpected [Unknown]
  - Patient dissatisfaction with treatment [Unknown]
